FAERS Safety Report 25453978 (Version 2)
Quarter: 2025Q3

REPORT INFORMATION
  Report Type: Spontaneous
  Country: US (occurrence: US)
  Receive Date: 20250619
  Receipt Date: 20250807
  Transmission Date: 20251021
  Serious: Yes (Hospitalization, Other)
  Sender: NOVO NORDISK
  Company Number: US-NOVOPROD-1458803

PATIENT
  Age: 56 Year
  Sex: Female
  Weight: 79.365 kg

DRUGS (15)
  1. WEGOVY [Suspect]
     Active Substance: SEMAGLUTIDE
     Dates: start: 20250502
  2. WEGOVY [Suspect]
     Active Substance: SEMAGLUTIDE
     Dates: start: 20250404
  3. WEGOVY [Suspect]
     Active Substance: SEMAGLUTIDE
     Indication: Obesity
     Dates: start: 20250103
  4. WEGOVY [Suspect]
     Active Substance: SEMAGLUTIDE
     Dates: end: 202505
  5. ALBUTEROL SULFATE [Concomitant]
     Active Substance: ALBUTEROL SULFATE
     Indication: Product used for unknown indication
     Route: 055
  6. CLONAZEPAM [Concomitant]
     Active Substance: CLONAZEPAM
     Indication: Back pain
     Dosage: 0.5 MG, QD
     Route: 048
  7. DICLOFENAC [Concomitant]
     Active Substance: DICLOFENAC
     Indication: Product used for unknown indication
     Dosage: APPLY 2 GRAMS TO THE AFFECTED AREA(S) BY TOPICAL ROUTE 4 TIMES PER DAY,1 % GEL
     Route: 061
  8. GABAPENTIN [Concomitant]
     Active Substance: GABAPENTIN
     Indication: Osteonecrosis
     Dosage: 300 MG, TID
     Route: 048
  9. ACETAMINOPHEN\HYDROCODONE [Concomitant]
     Active Substance: ACETAMINOPHEN\HYDROCODONE
     Dosage: 10 MG, QID
     Route: 048
  10. ACETAMINOPHEN\HYDROCODONE [Concomitant]
     Active Substance: ACETAMINOPHEN\HYDROCODONE
     Indication: Osteonecrosis
     Dosage: 325 MG, QID
     Route: 048
  11. KETOROLAC TROMETHAMINE [Concomitant]
     Active Substance: KETOROLAC TROMETHAMINE
     Indication: Product used for unknown indication
     Route: 030
  12. OMEPRAZOLE [Concomitant]
     Active Substance: OMEPRAZOLE
     Indication: Product used for unknown indication
     Dosage: 20 MG, QD
     Route: 048
  13. POTASSIUM CHLORIDE EXTENDED RELEASE [Concomitant]
     Active Substance: POTASSIUM CHLORIDE
     Indication: Product used for unknown indication
     Dosage: 20 MEQ, QD
  14. ROSUVASTATIN [Concomitant]
     Active Substance: ROSUVASTATIN
     Indication: Product used for unknown indication
     Dosage: 40 MG, QD
  15. SOLU-MEDROL [Concomitant]
     Active Substance: METHYLPREDNISOLONE SODIUM SUCCINATE
     Indication: Product used for unknown indication

REACTIONS (13)
  - Renal disorder [Unknown]
  - Abdominal discomfort [Unknown]
  - Hypokalaemia [Unknown]
  - Lumbar radiculopathy [Unknown]
  - Arthralgia [Unknown]
  - Cellulitis [Unknown]
  - Generalised anxiety disorder [Unknown]
  - Back pain [Unknown]
  - Intervertebral disc degeneration [Unknown]
  - Acute sinusitis [Unknown]
  - Skin mass [Unknown]
  - Skin irritation [Unknown]
  - Nausea [Unknown]

NARRATIVE: CASE EVENT DATE: 20250307
